FAERS Safety Report 8001691-9 (Version None)
Quarter: 2011Q4

REPORT INFORMATION
  Report Type: 
  Country: None (occurrence: None)
  Receive Date: 20111222
  Receipt Date: 20111214
  Transmission Date: 20120403
  Serious: Yes (Hospitalization, Other)
  Sender: FDA-Public Use
  Company Number: DE-NOVOPROD-332721

PATIENT

DRUGS (7)
  1. NEBIDO [Concomitant]
     Dosage: UNK
     Route: 030
     Dates: start: 20080201
  2. HYDROCORTISON                      /00028601/ [Concomitant]
     Dosage: 10 MG, UNK
     Route: 048
     Dates: start: 20070501
  3. TAMSULOSIN HCL [Concomitant]
  4. LEVOTHYROXINE SODIUM [Concomitant]
     Dosage: 50 UG, QD
     Route: 048
     Dates: start: 20070501
  5. NORDITROPIN [Suspect]
     Indication: HYPOPITUITARISM
     Dosage: 0.175 MG, QD
     Route: 058
     Dates: start: 20080222, end: 20110727
  6. LOSARTAN POTASSIUM AND HYDROCHLOROTHIAZIDE [Concomitant]
     Route: 048
  7. COSOPT [Concomitant]
     Indication: PRODUCT USED FOR UNKNOWN INDICATION

REACTIONS (1)
  - PROSTATE CANCER [None]
